FAERS Safety Report 8593630-7 (Version None)
Quarter: 2012Q3

REPORT INFORMATION
  Report Type: 
  Country: None (occurrence: None)
  Receive Date: 20120814
  Receipt Date: 20120807
  Transmission Date: 20120928
  Serious: Yes (Other)
  Sender: FDA-Public Use
  Company Number: US-PFIZER INC-2012149757

PATIENT
  Age: 87 Year
  Sex: Male

DRUGS (1)
  1. LATANOPROST [Suspect]
     Indication: GLAUCOMA
     Dosage: 1 GTT IN BOTH EYES, DAILY
     Route: 047
     Dates: start: 20120131

REACTIONS (1)
  - VISUAL IMPAIRMENT [None]
